FAERS Safety Report 5621911-5 (Version None)
Quarter: 2008Q1

REPORT INFORMATION
  Report Type: 
  Country: None (occurrence: None)
  Receive Date: 20080206
  Receipt Date: 20080123
  Transmission Date: 20080703
  Serious: Yes (Hospitalization)
  Sender: FDA-Public Use
  Company Number: CLOF-10796

PATIENT
  Age: 66 Year
  Sex: Female
  Weight: 95.4 kg

DRUGS (41)
  1. CLOFARABINE (CLOFARABINE) 30MG/M2 [Suspect]
     Indication: ACUTE MYELOID LEUKAEMIA
     Dosage: 30 MG/M2, QDX5, INTRAVENOUS, 20 MG/M2, QDX5, INTRAVENOUS
     Route: 042
     Dates: start: 20071009, end: 20071013
  2. CLOFARABINE (CLOFARABINE) 30MG/M2 [Suspect]
     Indication: ACUTE MYELOID LEUKAEMIA
     Dosage: 30 MG/M2, QDX5, INTRAVENOUS, 20 MG/M2, QDX5, INTRAVENOUS
     Route: 042
     Dates: start: 20071126, end: 20071130
  3. ESTRADIOL [Concomitant]
  4. SYNTHROID [Concomitant]
  5. LIPITOR [Concomitant]
  6. METOPROLOL TARTRATE [Concomitant]
  7. AMIKACIN [Concomitant]
  8. PROTONIX [Concomitant]
  9. VALTREX [Concomitant]
  10. PHENAZOPYRIDNE (PHENAZOPYRIDINE) [Concomitant]
  11. ONDANSETRON HCL [Concomitant]
  12. ALLOPURINOL [Concomitant]
  13. ACETAMINOPHEN [Concomitant]
  14. DIPHENHYDRAMINE HCL [Concomitant]
  15. ANUSOL (ZINC OXIDE, BORIC ACID, BISMUTH HYDROXIDE, BISMUTH SUBGALLATE, [Concomitant]
  16. TRANXENE [Concomitant]
  17. DOMEBORO (CALCIUM ACETATE, ALUMINIUM SULFATE) [Concomitant]
  18. PROPOXYPHENE (DEXTROPROPOXYPHENE) [Concomitant]
  19. MAGNESIUM SULFATE [Concomitant]
  20. HYDROCORTISONE (HYDROCORTISONE) [Concomitant]
  21. MEROPENEM (MEROPENEM) [Concomitant]
  22. LISINOPRIL [Concomitant]
  23. ATARAX [Concomitant]
  24. LORAZEPAM [Concomitant]
  25. GLIMEPIRIDE [Concomitant]
  26. ESOMEPRAZOLE (ESOMEPRAZOLE) [Concomitant]
  27. PROMETHAZINE [Concomitant]
  28. POTASSIUM CHLORIDE [Concomitant]
  29. NOVOLIN (INSULIN) [Concomitant]
  30. CANCIDAS (CASPOFUNGIN) [Concomitant]
  31. DAPTOMYCIN (DAPTOMYCIN) [Concomitant]
  32. DIPHENOXYLATE HCL W/ ATROPINE SULFATE [Concomitant]
  33. SALINE NASAL SPRAY [Concomitant]
  34. VANCOMYCIN [Concomitant]
  35. NDX [Concomitant]
  36. FLUCONAZOLE [Concomitant]
  37. FUROSEMIDE [Concomitant]
  38. AZTREONAM (AZTREONAM) [Concomitant]
  39. LOMOTIL [Concomitant]
  40. ZOFRAN [Concomitant]
  41. OLMESARTAN MEDOXOMIL [Concomitant]

REACTIONS (20)
  - BLOOD CULTURE POSITIVE [None]
  - BLOOD PRESSURE INCREASED [None]
  - CULTURE URINE POSITIVE [None]
  - DEHYDRATION [None]
  - DIARRHOEA [None]
  - FLUID OVERLOAD [None]
  - GASTROINTESTINAL HAEMORRHAGE [None]
  - LABORATORY TEST INTERFERENCE [None]
  - LUNG NEOPLASM [None]
  - NO THERAPEUTIC RESPONSE [None]
  - PLEURAL EFFUSION [None]
  - PNEUMONIA [None]
  - PULMONARY OEDEMA [None]
  - RECTAL HAEMORRHAGE [None]
  - RENAL CYST [None]
  - RENAL FAILURE ACUTE [None]
  - STAPHYLOCOCCAL INFECTION [None]
  - STREPTOCOCCAL INFECTION [None]
  - URINARY TRACT INFECTION [None]
  - URINARY TRACT INFECTION STAPHYLOCOCCAL [None]
